FAERS Safety Report 17121367 (Version 1)
Quarter: 2019Q4

REPORT INFORMATION
  Report Type: Spontaneous
  Country: US (occurrence: US)
  Receive Date: 20191206
  Receipt Date: 20191206
  Transmission Date: 20200122
  Serious: No
  Sender: FDA-Public Use
  Company Number: US-ELI_LILLY_AND_COMPANY-US201912002860

PATIENT
  Sex: Female

DRUGS (1)
  1. TRULICITY [Suspect]
     Active Substance: DULAGLUTIDE
     Indication: PRODUCT USED FOR UNKNOWN INDICATION
     Dosage: 0.75 MG, UNKNOWN
     Route: 065
     Dates: start: 20191202

REACTIONS (6)
  - Gastrooesophageal reflux disease [Unknown]
  - Abdominal pain [Unknown]
  - Flushing [Unknown]
  - Pyrexia [Unknown]
  - Flatulence [Unknown]
  - Eructation [Unknown]
